FAERS Safety Report 8793008 (Version 2)
Quarter: 2015Q1

REPORT INFORMATION
  Report Type: Report from Study
  Country: US (occurrence: US)
  Receive Date: 20120918
  Receipt Date: 20150303
  Transmission Date: 20150721
  Serious: Yes (Death)
  Sender: FDA-Public Use
  Company Number: US-ROCHE-1103514

PATIENT
  Age: 76 Year
  Sex: Female
  Weight: 90 kg

DRUGS (13)
  1. IRINOTECAN [Concomitant]
     Active Substance: IRINOTECAN
     Route: 042
  2. TAXOTERE [Concomitant]
     Active Substance: DOCETAXEL
     Route: 042
  3. CISPLATIN. [Concomitant]
     Active Substance: CISPLATIN
     Route: 042
  4. DECADRON [Concomitant]
     Active Substance: DEXAMETHASONE
     Route: 042
  5. ZOFRAN [Concomitant]
     Active Substance: ONDANSETRON HYDROCHLORIDE
     Route: 042
  6. ARANESP [Concomitant]
     Active Substance: DARBEPOETIN ALFA
     Route: 058
  7. PROCRIT [Concomitant]
     Active Substance: ERYTHROPOIETIN
  8. AVASTIN [Suspect]
     Active Substance: BEVACIZUMAB
     Indication: PANCREATIC CARCINOMA
     Route: 042
     Dates: start: 20050601
  9. ALOXI [Concomitant]
     Active Substance: PALONOSETRON HYDROCHLORIDE
     Route: 042
  10. TYLENOL [Concomitant]
     Active Substance: ACETAMINOPHEN
     Route: 065
  11. XELODA [Suspect]
     Active Substance: CAPECITABINE
     Indication: PRODUCT USED FOR UNKNOWN INDICATION
     Dosage: 14 DAYS ON, 7 DAYS OFF
     Route: 042
     Dates: start: 20031020
  12. GEMZAR [Concomitant]
     Active Substance: GEMCITABINE HYDROCHLORIDE
     Route: 042
  13. BENADRYL [Concomitant]
     Active Substance: DIPHENHYDRAMINE HYDROCHLORIDE
     Route: 042

REACTIONS (4)
  - Musculoskeletal chest pain [Unknown]
  - Death [Fatal]
  - Off label use [Unknown]
  - Dyspepsia [Unknown]

NARRATIVE: CASE EVENT DATE: 20050612
